FAERS Safety Report 8299860-6 (Version None)
Quarter: 2012Q2

REPORT INFORMATION
  Report Type: 
  Country: None (occurrence: None)
  Receive Date: 20120419
  Receipt Date: 20120330
  Transmission Date: 20120825
  Serious: Yes (Hospitalization)
  Sender: FDA-Public Use
  Company Number: US-BAXTER-2012BAX000730

PATIENT
  Sex: Male

DRUGS (2)
  1. COUMADIN [Suspect]
     Route: 065
  2. DIANEAL [Suspect]
     Route: 033

REACTIONS (1)
  - GASTROINTESTINAL HAEMORRHAGE [None]
